FAERS Safety Report 7622681-1 (Version None)
Quarter: 2011Q3

REPORT INFORMATION
  Report Type: 
  Country: None (occurrence: None)
  Receive Date: 20110719
  Receipt Date: 20110719
  Transmission Date: 20111222
  Serious: Yes (Hospitalization)
  Sender: FDA-Public Use
  Company Number: None

PATIENT
  Sex: Male
  Weight: 20.7 kg

DRUGS (3)
  1. DOXORUBICIN HYDROCHLORIDE [Suspect]
     Dosage: 423 MG
  2. METHOTREXATE [Suspect]
     Dosage: 120 MG
  3. CISPLATIN [Suspect]
     Dosage: 422.4 MG

REACTIONS (2)
  - BLOOD COUNT ABNORMAL [None]
  - ACUTE MYELOID LEUKAEMIA [None]
